FAERS Safety Report 7790524-1 (Version None)
Quarter: 2011Q3

REPORT INFORMATION
  Report Type: 
  Country: None (occurrence: None)
  Receive Date: 20110930
  Receipt Date: 20110919
  Transmission Date: 20111222
  Serious: Yes (Other)
  Sender: FDA-Public Use
  Company Number: PHHY2011CA76722

PATIENT
  Sex: Female

DRUGS (2)
  1. SANDOSTATIN LAR [Suspect]
     Indication: PANCREATIC NEUROENDOCRINE TUMOUR
     Dosage: 20 MG ONCE A MONTH
     Route: 030
     Dates: start: 20110808
  2. AFINITOR [Suspect]
     Indication: PANCREATIC NEUROENDOCRINE TUMOUR
     Dosage: 20 MG EVERY DAY
     Route: 048
     Dates: start: 20110818

REACTIONS (8)
  - ABDOMINAL PAIN [None]
  - ACNE [None]
  - ABDOMINAL PAIN UPPER [None]
  - HEADACHE [None]
  - ABSCESS ORAL [None]
  - PARAESTHESIA [None]
  - DYSPEPSIA [None]
  - DIARRHOEA [None]
